FAERS Safety Report 16721792 (Version 1)
Quarter: 2019Q3

REPORT INFORMATION
  Report Type: Spontaneous
  Country: US (occurrence: US)
  Receive Date: 20190820
  Receipt Date: 20190820
  Transmission Date: 20191005
  Serious: Yes (Other)
  Sender: FDA-Public Use
  Company Number: US-GLAXOSMITHKLINE-US2019149863

PATIENT
  Age: 17 Year
  Sex: Female

DRUGS (1)
  1. NICORETTE [Suspect]
     Active Substance: NICOTINE
     Indication: SMOKING CESSATION THERAPY
     Dosage: UNK, PRN( SHE TOOK TWO PIECES OF THE GUM)

REACTIONS (4)
  - Loss of consciousness [Unknown]
  - Extra dose administered [Unknown]
  - Product use issue [Unknown]
  - Amnesia [Unknown]

NARRATIVE: CASE EVENT DATE: 201903
